FAERS Safety Report 4268729-6 (Version None)
Quarter: 2004Q1

REPORT INFORMATION
  Report Type: 
  Country: None (occurrence: None)
  Receive Date: 20040109
  Receipt Date: 20031230
  Transmission Date: 20041129
  Serious: Yes (Hospitalization)
  Sender: FDA-Public Use
  Company Number: HQWYE963030DEC03

PATIENT
  Age: 74 Year
  Sex: Male

DRUGS (13)
  1. ANCARON (AMIODARONE, TABLET) [Suspect]
     Indication: VENTRICULAR TACHYCARDIA
     Dosage: 60 MG 1X PER 1 DAY
     Route: 048
     Dates: start: 20031108, end: 20031126
  2. BAYASPIRINA (ACETYLSALICYLIC ACID) [Concomitant]
  3. DIOVAN [Concomitant]
  4. FAMOTIDINE [Concomitant]
  5. DIART (AZOSEMIDE) [Concomitant]
  6. ALLOPURINOL [Concomitant]
  7. THYRADIN S (LEVOTHYROXINE SODIUM) [Concomitant]
  8. ISOSORBIDE MONONITRATE [Concomitant]
  9. SIGMART (NICORANDIL) [Concomitant]
  10. WARFARIN SODIUM [Concomitant]
  11. SELBEX (TEPRENONE) [Concomitant]
  12. CARVEDILOL [Concomitant]
  13. SERENAL (OXAZOLAM) [Concomitant]

REACTIONS (1)
  - ANAEMIA [None]
